FAERS Safety Report 16111449 (Version 1)
Quarter: 2019Q1

REPORT INFORMATION
  Report Type: Spontaneous
  Country: DE (occurrence: DE)
  Receive Date: 20190325
  Receipt Date: 20190325
  Transmission Date: 20190418
  Serious: Yes (Death, Life-Threatening, Hospitalization)
  Sender: FDA-Public Use
  Company Number: DE-009507513-1903DEU009091

PATIENT
  Age: 36 Year
  Sex: Female

DRUGS (37)
  1. PROSTIGMINE /00045902/ [Suspect]
     Active Substance: NEOSTIGMINE BROMIDE
     Indication: MALNUTRITION
     Dosage: 1 UNK
     Route: 061
     Dates: start: 19911028, end: 19911028
  2. BEN-U-RON [Concomitant]
     Active Substance: ACETAMINOPHEN
     Indication: SEPSIS
     Dosage: 1 DOSAGE FORM
     Route: 054
     Dates: start: 19911102, end: 19911112
  3. BETABION [Concomitant]
     Indication: ALCOHOLISM
     Dosage: UNK
     Route: 030
     Dates: end: 19911103
  4. FOLSAN [Concomitant]
     Active Substance: FOLIC ACID
     Indication: ALCOHOLISM
     Dosage: UNK
     Route: 042
     Dates: end: 19911101
  5. FENTANYL. [Concomitant]
     Active Substance: FENTANYL
     Indication: MECHANICAL VENTILATION
     Dosage: UNK
     Route: 042
     Dates: start: 19911018
  6. FERRO SANOL [Suspect]
     Active Substance: FERROUS GLYCINE SULFATE
     Dosage: UNK
     Route: 048
     Dates: start: 199111, end: 19911107
  7. LASIX [Suspect]
     Active Substance: FUROSEMIDE
     Indication: OEDEMA
     Dosage: UNK
     Route: 048
     Dates: start: 19911019, end: 19911113
  8. VALIUM [Suspect]
     Active Substance: DIAZEPAM
     Indication: SEDATION
     Dosage: UNK
     Route: 042
     Dates: start: 19911021, end: 19911024
  9. DIFLUCAN [Suspect]
     Active Substance: FLUCONAZOLE
     Dosage: UNK
     Route: 042
     Dates: start: 19911016, end: 19911122
  10. OMEPRAZOLE. [Suspect]
     Active Substance: OMEPRAZOLE
     Indication: PROPHYLAXIS
     Dosage: UNK
     Route: 048
     Dates: start: 19911028, end: 19911028
  11. HEXOBION [Concomitant]
     Indication: ALCOHOLISM
     Dosage: UNK
     Route: 042
     Dates: end: 19911103
  12. ANTRA (OMEPRAZOLE) [Suspect]
     Active Substance: OMEPRAZOLE
     Dosage: UNK
     Route: 048
     Dates: start: 19911029, end: 19911029
  13. KYBERNIN [Suspect]
     Active Substance: ANTITHROMBIN III HUMAN
     Indication: COAGULOPATHY
     Dosage: UNK
     Route: 042
     Dates: start: 19911017, end: 19911020
  14. BEPANTHEN (DEXPANTHENOL) [Suspect]
     Active Substance: DEXPANTHENOL
     Indication: MALNUTRITION
     Dosage: 1 UNK
     Route: 042
     Dates: start: 19911027, end: 19911027
  15. BREVIMYTAL SODIUM [Concomitant]
     Indication: MECHANICAL VENTILATION
     Dosage: UNK
     Route: 042
     Dates: start: 19911018
  16. MINERALS (UNSPECIFIED) [Concomitant]
     Indication: MALNUTRITION
     Dosage: UNK
     Route: 042
     Dates: start: 19911019
  17. CISAPRIDE [Suspect]
     Active Substance: CISAPRIDE
     Dosage: UNK
     Route: 048
     Dates: start: 19911025, end: 19911025
  18. MULTIBIONTA [Concomitant]
     Active Substance: MINERALS\PROBIOTICS NOS\VITAMINS
     Indication: MALNUTRITION
     Dosage: UNK
     Route: 042
     Dates: end: 19911019
  19. VITAMINS (UNSPECIFIED) [Concomitant]
     Active Substance: VITAMINS
     Indication: MALNUTRITION
     Dosage: UNK
     Route: 048
     Dates: start: 19911016, end: 19911101
  20. DIHYDROERGOTAMINE MESYLATE. [Concomitant]
     Active Substance: DIHYDROERGOTAMINE MESYLATE
     Dosage: UNK
     Route: 048
     Dates: start: 19911017, end: 19911017
  21. ZOVIRAX [Suspect]
     Active Substance: ACYCLOVIR
     Indication: HERPES VIRUS INFECTION
     Dosage: UNK
     Route: 042
     Dates: start: 19911022, end: 19911107
  22. DICODID [Suspect]
     Active Substance: HYDROCODONE BITARTRATE
     Dosage: 1 UNK
     Route: 030
     Dates: start: 19911024, end: 19911024
  23. CIPROBAY (CIPROFLOXACIN) [Concomitant]
     Active Substance: CIPROFLOXACIN
     Indication: SEPSIS
     Dosage: UNK
     Route: 042
     Dates: start: 19911028, end: 19911103
  24. ULCOGANT [Concomitant]
     Active Substance: SUCRALFATE
     Indication: PROPHYLAXIS
     Dosage: UNK
     Route: 048
     Dates: end: 19911026
  25. ERYTHROMYCIN. [Suspect]
     Active Substance: ERYTHROMYCIN
     Indication: SEPSIS
     Dosage: 1 UNK
     Route: 042
     Dates: start: 19911023, end: 19911023
  26. TRUXAL (CHLORPROTHIXENE) [Suspect]
     Active Substance: CHLORPROTHIXENE
     Indication: SEDATION
     Dosage: UNK
     Route: 042
     Dates: start: 19911019, end: 19911103
  27. DIHYDROERGOTAMINE MESYLATE. [Suspect]
     Active Substance: DIHYDROERGOTAMINE MESYLATE
     Dosage: 1 UNK
     Route: 048
     Dates: start: 19911017, end: 19911017
  28. ZIENAM 500 [Suspect]
     Active Substance: CILASTATIN SODIUM\IMIPENEM
     Indication: SEPSIS
     Dosage: 1.5 GRAM, QD
     Route: 042
     Dates: start: 19911016, end: 19911025
  29. INZOLEN [Suspect]
     Active Substance: MAGNESIUM ASPARTATE\POTASSIUM ASPARTATE
     Dosage: UNK
     Route: 042
     Dates: start: 19911019, end: 19911113
  30. EUGALAN [Suspect]
     Active Substance: LACTOBACILLUS ACIDOPHILUS
     Dosage: UNK
     Route: 048
     Dates: start: 19911024, end: 19911027
  31. TAVEGIL [Concomitant]
     Active Substance: CLEMASTINE FUMARATE
     Indication: MALNUTRITION
     Dosage: 8 MILLIGRAM, QD
     Route: 042
     Dates: start: 19911026, end: 19911026
  32. ANTITHROMBIN III [Concomitant]
     Active Substance: ANTITHROMBIN III HUMAN
     Indication: COAGULOPATHY
     Dosage: UNK
     Route: 042
     Dates: start: 19911017, end: 19911020
  33. PROPULSIN [Suspect]
     Active Substance: CISAPRIDE
     Dosage: UNK
     Route: 048
     Dates: start: 19911025, end: 19911025
  34. BRONCHOPARAT [Concomitant]
     Active Substance: THEOPHYLLINE ANHYDROUS
     Indication: MECHANICAL VENTILATION
     Dosage: UNK
     Route: 048
     Dates: start: 19911016, end: 19911031
  35. FLUIMUCIL [Concomitant]
     Active Substance: ACETYLCYSTEINE
     Indication: LIFE SUPPORT
     Dosage: UNK
     Route: 042
     Dates: start: 19911016, end: 19911103
  36. HYDROCORTISONE. [Concomitant]
     Active Substance: HYDROCORTISONE
     Indication: MALNUTRITION
     Dosage: UNK
     Route: 048
     Dates: end: 19911028
  37. CANESTEN [Concomitant]
     Active Substance: CLOTRIMAZOLE
     Indication: CANDIDA INFECTION
     Dosage: 1 DOSAGE FORM
     Route: 067
     Dates: start: 19911106, end: 19911113

REACTIONS (3)
  - Toxic epidermal necrolysis [Unknown]
  - Toxic epidermal necrolysis [Not Recovered/Not Resolved]
  - Cerebral haemorrhage [Fatal]

NARRATIVE: CASE EVENT DATE: 19911104
